FAERS Safety Report 21975309 (Version 1)
Quarter: 2023Q1

REPORT INFORMATION
  Report Type: Spontaneous
  Country: US (occurrence: US)
  Receive Date: 20230210
  Receipt Date: 20230210
  Transmission Date: 20230417
  Serious: Yes (Death, Hospitalization, Other)
  Sender: FDA-Public Use
  Company Number: US-NOVAST LABORATORIES INC.-2023NOV000048

PATIENT
  Age: 54 Year
  Sex: Female

DRUGS (1)
  1. METFORMIN [Suspect]
     Active Substance: METFORMIN HYDROCHLORIDE
     Indication: Product used for unknown indication
     Dosage: 25.5 GRAM
     Route: 048

REACTIONS (5)
  - Suspected suicide [Fatal]
  - Overdose [Fatal]
  - Encephalopathy [Unknown]
  - Metabolic acidosis [Unknown]
  - Cardiac arrest [Unknown]
